FAERS Safety Report 22824197 (Version 2)
Quarter: 2023Q4

REPORT INFORMATION
  Report Type: Report from Study
  Country: KR (occurrence: KR)
  Receive Date: 20230815
  Receipt Date: 20231024
  Transmission Date: 20240110
  Serious: Yes (Other)
  Sender: FDA-Public Use
  Company Number: KR-Merck Healthcare KGaA-2023466711

PATIENT
  Age: 27 Year
  Sex: Female

DRUGS (4)
  1. CLADRIBINE [Suspect]
     Active Substance: CLADRIBINE
     Indication: Relapsing-remitting multiple sclerosis
     Dosage: YEAR 1 WEEK 1: THE SUBJECT WEIGHT WAS 43.9 KG.
     Route: 048
     Dates: start: 20220503, end: 20220506
  2. CLADRIBINE [Suspect]
     Active Substance: CLADRIBINE
     Dosage: YEAR 1 WEEK 2: THE SUBJECT WEIGHT WAS 43.9 KG.
     Route: 048
     Dates: start: 20220622, end: 20220625
  3. CLADRIBINE [Suspect]
     Active Substance: CLADRIBINE
     Dosage: YEAR 2 WEEK 1: THE SUBJECT WEIGHT WAS 43.9 KG.
     Route: 048
     Dates: start: 20230510, end: 20230513
  4. CLADRIBINE [Suspect]
     Active Substance: CLADRIBINE
     Dosage: YEAR 2 WEEK 2: THE SUBJECT WEIGHT WAS 43.9 KG.
     Route: 048
     Dates: start: 20230618, end: 20230621

REACTIONS (1)
  - Ovarian cyst ruptured [Not Recovered/Not Resolved]

NARRATIVE: CASE EVENT DATE: 20230729
